FAERS Safety Report 6843990-X (Version None)
Quarter: 2010Q3

REPORT INFORMATION
  Report Type: 
  Country: None (occurrence: None)
  Receive Date: 20100715
  Receipt Date: 20100707
  Transmission Date: 20110219
  Serious: Yes (Other)
  Sender: FDA-Public Use
  Company Number: US-JNJCH-2010016174

PATIENT
  Age: 49 Year
  Sex: Male
  Weight: 106.6 kg

DRUGS (3)
  1. LISTERINE WHITENING PRE-BRUSH RINSE [Suspect]
     Indication: DENTAL CARE
     Dosage: TEXT:HALF CAPFUL ONCE
     Route: 048
     Dates: start: 20100705, end: 20100705
  2. CYMBALTA [Concomitant]
     Indication: NERVE INJURY
     Dosage: TEXT:60MG TWICE DAILY
     Route: 065
  3. LYRICA [Concomitant]
     Indication: NERVE INJURY
     Dosage: TEXT:150MG MORNING, 200MG
     Route: 065

REACTIONS (2)
  - CHEMICAL INJURY [None]
  - THROAT TIGHTNESS [None]
